FAERS Safety Report 7623822-2 (Version None)
Quarter: 2011Q3

REPORT INFORMATION
  Report Type: 
  Country: None (occurrence: None)
  Receive Date: 20110712
  Receipt Date: 20110311
  Transmission Date: 20111222
  Serious: Yes (Hospitalization)
  Sender: FDA-Public Use
  Company Number: FK201100319

PATIENT
  Age: 41 Year
  Sex: Male
  Weight: 127 kg

DRUGS (3)
  1. VANCOMYCIN HYCHLORIDE [Suspect]
  2. VANCOMYCIN HYDROCHLORIDE [Suspect]
     Indication: MENINGITIS BACTERIAL
     Dosage: 1.25 MG, Q12H, INTRAVENOUS (NOT OTHERWISE SPECIFIED)
     Dates: start: 20110123, end: 20110211
  3. CEFTRIAXON [Concomitant]
     Indication: MENINGITIS BACTERIAL
     Dosage: 2 GM, Q12H, INTRAVENOUS (NOT OTHERWISE SPECIFIED)
     Route: 042

REACTIONS (11)
  - RED BLOOD CELL SEDIMENTATION RATE INCREASED [None]
  - MYALGIA [None]
  - RASH [None]
  - ARTHRALGIA [None]
  - C-REACTIVE PROTEIN INCREASED [None]
  - SERUM FERRITIN INCREASED [None]
  - INFLAMMATION [None]
  - HYPOTENSION [None]
  - PYREXIA [None]
  - LIVER FUNCTION TEST ABNORMAL [None]
  - DEHYDRATION [None]
